FAERS Safety Report 6264046-3 (Version None)
Quarter: 2009Q3

REPORT INFORMATION
  Report Type: 
  Country: None (occurrence: None)
  Receive Date: 20090710
  Receipt Date: 20090706
  Transmission Date: 20100115
  Serious: Yes (Death, Hospitalization, Disabling, Other)
  Sender: FDA-Public Use
  Company Number: PHHO2009JP01435

PATIENT
  Sex: Female
  Weight: 55 kg

DRUGS (14)
  1. CGS 20267 T30748+TAB [Suspect]
     Indication: BREAST CANCER
     Dosage: DOUBLE BLIND
     Route: 048
     Dates: start: 20080126, end: 20090123
  2. PACLITAXEL [Suspect]
     Dosage: UNK
     Dates: end: 20071102
  3. CYCLOPHOSPHAMIDE [Suspect]
     Dosage: UNK
     Dates: end: 20071102
  4. DOXORUBICIN HCL [Suspect]
     Dosage: UNK
     Dates: end: 20070713
  5. FLUOROURACIL [Suspect]
     Dosage: UNK
     Dates: end: 20070713
  6. CYANOCOBALAMIN [Concomitant]
  7. HYALEIN [Concomitant]
  8. ISODINE [Concomitant]
  9. DIGOXIN [Concomitant]
  10. ASPIRIN [Concomitant]
  11. ALDACTONE [Concomitant]
  12. LASIX [Concomitant]
  13. BLOPRESS [Concomitant]
  14. ALOSITOL [Concomitant]

REACTIONS (9)
  - ATRIAL FIBRILLATION [None]
  - ATRIAL TACHYCARDIA [None]
  - CARDIAC AMYLOIDOSIS [None]
  - CARDIAC ARREST [None]
  - CARDIAC FAILURE [None]
  - CARDIAC PACEMAKER INSERTION [None]
  - LEFT VENTRICULAR FAILURE [None]
  - RENAL IMPAIRMENT [None]
  - RESTRICTIVE CARDIOMYOPATHY [None]
